FAERS Safety Report 9192387 (Version 1)
Quarter: 2013Q1

REPORT INFORMATION
  Report Type: Spontaneous
  Country: US (occurrence: None)
  Receive Date: 20130326
  Receipt Date: 20130326
  Transmission Date: 20140127
  Serious: No
  Sender: FDA-Public Use
  Company Number: None

PATIENT
  Age: 4 Month
  Sex: Male
  Weight: 6.35 kg

DRUGS (2)
  1. VITAMINS [Suspect]
     Indication: BREAST FEEDING
     Route: 048
     Dates: start: 201212, end: 201201
  2. VITAMINS [Suspect]
     Route: 048
     Dates: start: 20130311, end: 20130324

REACTIONS (6)
  - Constipation [None]
  - Sleep disorder [None]
  - Flatulence [None]
  - Abnormal faeces [None]
  - Abnormal faeces [None]
  - Condition aggravated [None]
